FAERS Safety Report 5397562-7 (Version None)
Quarter: 2007Q3

REPORT INFORMATION
  Report Type: 
  Country: None (occurrence: None)
  Receive Date: 20070724
  Receipt Date: 20070724
  Transmission Date: 20080115
  Serious: Yes (Life-Threatening)
  Sender: FDA-Public Use
  Company Number: None

PATIENT
  Sex: Female
  Weight: 63.5036 kg

DRUGS (4)
  1. KEFLEX [Suspect]
     Indication: KIDNEY INFECTION
     Dosage: KEFLEX 250MG 4 TIMES A DAY BY MOUTH WITHIN LAST 5 YEARS
     Route: 048
  2. PENICILLIN [Suspect]
     Indication: EAR INFECTION
     Dosage: PENICILLIN 250MG 4 TIMES A DAY BY MOUTH WITHIN LAST 1 YEAR
     Route: 048
  3. AMPICILLIN [Suspect]
  4. GENERIC STEROID DOSE,PACK, GENERIC MUSCLE RELAXANT [Suspect]

REACTIONS (4)
  - DRUG HYPERSENSITIVITY [None]
  - DYSPNOEA [None]
  - SWOLLEN TONGUE [None]
  - URTICARIA [None]
